FAERS Safety Report 23104716 (Version 1)
Quarter: 2023Q4

REPORT INFORMATION
  Report Type: Spontaneous
  Country: US (occurrence: None)
  Receive Date: 20231023
  Receipt Date: 20231023
  Transmission Date: 20240109
  Serious: Yes (Hospitalization)
  Sender: FDA-Public Use
  Company Number: None

PATIENT
  Sex: Female

DRUGS (14)
  1. COPAXONE [Suspect]
     Active Substance: GLATIRAMER ACETATE
     Indication: Multiple sclerosis
     Route: 058
     Dates: start: 20150529
  2. BACLOFEN [Concomitant]
     Active Substance: BACLOFEN
  3. CLONAZEPAM [Concomitant]
     Active Substance: CLONAZEPAM
  4. ESTER-C [Concomitant]
  5. IBUPROFEN [Concomitant]
     Active Substance: IBUPROFEN
  6. IRON [Concomitant]
  7. L-LYSINE HCL [Concomitant]
  8. LEXAPRO [Concomitant]
     Active Substance: ESCITALOPRAM OXALATE
  9. OMEGA [Concomitant]
  10. OMEPRAZOLE [Concomitant]
     Active Substance: OMEPRAZOLE
  11. PROBIOTIC CAP [Concomitant]
  12. FISH OIL [Concomitant]
     Active Substance: FISH OIL
  13. VITAMIN D NOS [Concomitant]
     Active Substance: VITAMIN D NOS
  14. VITAMIN D3 [Concomitant]
     Active Substance: CHOLECALCIFEROL

REACTIONS (16)
  - Multiple sclerosis relapse [None]
  - Back pain [None]
  - Balance disorder [None]
  - Depression [None]
  - Diarrhoea [None]
  - Fatigue [None]
  - Pruritus [None]
  - Cognitive disorder [None]
  - Movement disorder [None]
  - Fall [None]
  - Pain [None]
  - Sensory disturbance [None]
  - Musculoskeletal stiffness [None]
  - Muscle spasticity [None]
  - Visual impairment [None]
  - Therapy interrupted [None]
